FAERS Safety Report 21086719 (Version 1)
Quarter: 2022Q3

REPORT INFORMATION
  Report Type: Report from Study
  Country: BR (occurrence: BR)
  Receive Date: 20220715
  Receipt Date: 20220715
  Transmission Date: 20221027
  Serious: Yes (Other)
  Sender: FDA-Public Use
  Company Number: BR-JNJFOC-20220717184

PATIENT
  Age: 17 Year
  Sex: Male
  Weight: 62 kg

DRUGS (2)
  1. INFLIXIMAB [Suspect]
     Active Substance: INFLIXIMAB
     Indication: Crohn^s disease
     Dosage: 10MG/ML - (VIAL-AMPOULE 10ML)?RECONSTITUTE 05 AMPOULES (EQUIVALENT TO 500 MG) WITH 10 ML OF WATER F
     Route: 041
  2. REMICADE [Suspect]
     Active Substance: INFLIXIMAB
     Indication: Crohn^s disease
     Dosage: 10MG/ML - (VIAL-AMPOULE 10ML)?RECONSTITUTE 05 AMPOULES (EQUIVALENT TO 500 MG) WITH 10 ML OF WATER F
     Route: 041

REACTIONS (4)
  - Crohn^s disease [Unknown]
  - Weight increased [Unknown]
  - Intercepted product prescribing error [Unknown]
  - Off label use [Unknown]
